FAERS Safety Report 21555899 (Version 1)
Quarter: 2022Q4

REPORT INFORMATION
  Report Type: Spontaneous
  Country: US (occurrence: None)
  Receive Date: 20221103
  Receipt Date: 20221103
  Transmission Date: 20230113
  Serious: No
  Sender: FDA-Public Use
  Company Number: None

PATIENT
  Age: 69 Year
  Sex: Male
  Weight: 100.7 kg

DRUGS (32)
  1. DICLOFENAC SODIUM [Suspect]
     Active Substance: DICLOFENAC SODIUM
     Indication: Arthritis
     Dosage: FREQUENCY : AS NEEDED; 2 GRAMS?
     Route: 058
     Dates: start: 20220915, end: 20221028
  2. DICLOFENAC SODIUM [Suspect]
     Active Substance: DICLOFENAC SODIUM
     Indication: Stress fracture
  3. DICLOFENAC SODIUM [Suspect]
     Active Substance: DICLOFENAC SODIUM
     Indication: Neuritis
  4. BUPROPION [Concomitant]
     Active Substance: BUPROPION
  5. TESTOSTERONE [Concomitant]
  6. LABETALOL [Concomitant]
     Active Substance: LABETALOL\LABETALOL HYDROCHLORIDE
  7. MONTELUKAST [Concomitant]
     Active Substance: MONTELUKAST SODIUM
  8. METHADONE [Concomitant]
     Active Substance: METHADONE HYDROCHLORIDE
  9. PREGABALIN [Concomitant]
     Active Substance: PREGABALIN
  10. CELECOXIB [Concomitant]
     Active Substance: CELECOXIB
  11. OXYCODONE [Concomitant]
     Active Substance: OXYCODONE
  12. VALACYCLOVIR [Concomitant]
     Active Substance: VALACYCLOVIR HYDROCHLORIDE
  13. NITROGLYCERIN [Concomitant]
     Active Substance: NITROGLYCERIN
  14. ARMODAFINIL [Concomitant]
     Active Substance: ARMODAFINIL
  15. MILNACIPRAN HYDROCHLORIDE [Concomitant]
     Active Substance: MILNACIPRAN HYDROCHLORIDE
  16. DOXAYZOSIN [Concomitant]
  17. AMLODIPINE [Concomitant]
     Active Substance: AMLODIPINE BESYLATE
  18. CANDESARTAN [Concomitant]
     Active Substance: CANDESARTAN
  19. TAMSULOSIN HYDROCHLORIDE [Concomitant]
     Active Substance: TAMSULOSIN HYDROCHLORIDE
  20. HYDROCHLOROTHIAZIDE\SPIRONOLACTONE [Concomitant]
     Active Substance: HYDROCHLOROTHIAZIDE\SPIRONOLACTONE
  21. MINOXADIL [Concomitant]
  22. POLYETHYLENE GLYCOL 3350 [Concomitant]
     Active Substance: POLYETHYLENE GLYCOL 3350
  23. POLYSACC IRON COMPLEX [Concomitant]
     Active Substance: FERRIC POLYSACCHARIDE COMPLEX
  24. VITAMIN B COMPLEX [Concomitant]
     Active Substance: CYANOCOBALAMIN\DEXPANTHENOL\NIACINAMIDE\PYRIDOXINE HYDROCHLORIDE\RIBOFLAVIN 5^-PHOSPHATE SODIUM\THIA
  25. VITAMIN C [Concomitant]
     Active Substance: ASCORBIC ACID
  26. VITAMIN D3 [Concomitant]
     Active Substance: CHOLECALCIFEROL
  27. MULTIVITAMIN (CENTRUM MEN^S) [Concomitant]
  28. DOCUSATE SODIUM [Concomitant]
     Active Substance: DOCUSATE SODIUM
  29. ZINC 50 [Concomitant]
  30. KETOTIFEN FUMARATE [Concomitant]
     Active Substance: KETOTIFEN FUMARATE
  31. FLUTICASONE [Concomitant]
     Active Substance: FLUTICASONE
  32. OXYMETAZOLINE HYDROCHLORIDE [Concomitant]
     Active Substance: OXYMETAZOLINE HYDROCHLORIDE

REACTIONS (3)
  - Extra dose administered [None]
  - Product use complaint [None]
  - Product dose confusion [None]

NARRATIVE: CASE EVENT DATE: 20221028
